FAERS Safety Report 5790057-8 (Version None)
Quarter: 2008Q2

REPORT INFORMATION
  Report Type: 
  Country: None (occurrence: None)
  Receive Date: 20080626
  Receipt Date: 20080617
  Transmission Date: 20081010
  Serious: Yes (Life-Threatening)
  Sender: FDA-Public Use
  Company Number: US-TYCO HEALTHCARE/MALLINCKRODT-T200801034

PATIENT

DRUGS (3)
  1. TECHNESCAN [Suspect]
     Indication: BONE SCAN
     Dosage: UNK, SINGLE
     Route: 042
     Dates: start: 20080616, end: 20080616
  2. ULTRA-TECHNEKOW [Suspect]
     Indication: RADIOISOTOPE SCAN
     Dosage: 27.4 MCI, SINGLE
     Route: 042
     Dates: start: 20080616, end: 20080616
  3. DILAUDID [Suspect]
     Dates: start: 20080616

REACTIONS (2)
  - CARDIO-RESPIRATORY ARREST [None]
  - UNRESPONSIVE TO STIMULI [None]
